FAERS Safety Report 23354789 (Version 1)
Quarter: 2024Q1

REPORT INFORMATION
  Report Type: Spontaneous
  Country: FI (occurrence: FI)
  Receive Date: 20240101
  Receipt Date: 20240101
  Transmission Date: 20240410
  Serious: Yes (Other)
  Sender: FDA-Public Use
  Company Number: FI-SA-SAC20231206000629

PATIENT

DRUGS (2)
  1. DUPILUMAB [Suspect]
     Active Substance: DUPILUMAB
     Indication: Graft versus host disease
     Dosage: 300 MG, Q4W
  2. DUPILUMAB [Suspect]
     Active Substance: DUPILUMAB
     Indication: Skin necrosis

REACTIONS (3)
  - Skin necrosis [Unknown]
  - Condition aggravated [Unknown]
  - Product use in unapproved indication [Unknown]
